FAERS Safety Report 25678442 (Version 1)
Quarter: 2025Q3

REPORT INFORMATION
  Report Type: Spontaneous
  Country: BR (occurrence: BR)
  Receive Date: 20250813
  Receipt Date: 20250813
  Transmission Date: 20251020
  Serious: Yes (Other)
  Sender: JOHNSON AND JOHNSON
  Company Number: BR-JNJFOC-20250810169

PATIENT
  Age: 8 Year
  Sex: Female

DRUGS (46)
  1. BOSENTAN [Suspect]
     Active Substance: BOSENTAN
     Indication: Pulmonary hypertension
     Dosage: DILUTE ONE TABLET IN 3ML OF WATER AND GIVE 1ML ORALLY TWICE DAILLY
     Route: 048
     Dates: end: 202402
  2. ASPIRIN [Concomitant]
     Active Substance: ASPIRIN
     Indication: Product used for unknown indication
  3. SILDENAFIL [Concomitant]
     Active Substance: SILDENAFIL
     Indication: Product used for unknown indication
  4. HYDROCHLOROTHIAZIDE [Concomitant]
     Active Substance: HYDROCHLOROTHIAZIDE
     Indication: Product used for unknown indication
  5. SPIRONOLACTONE [Concomitant]
     Active Substance: SPIRONOLACTONE
     Indication: Product used for unknown indication
  6. NYSTATIN [Concomitant]
     Active Substance: NYSTATIN
     Indication: Product used for unknown indication
  7. CUTISANOL [BISMUTH SUBGALLATE;THYMOL IODIDE;ZINC OXIDE] [Concomitant]
     Indication: Product used for unknown indication
  8. CETAPHIL RESTORADERM [Concomitant]
     Indication: Product used for unknown indication
  9. PRODERM [AVOBENZONE;OCTOCRILENE] [Concomitant]
     Indication: Product used for unknown indication
     Dosage: SOS
  10. 3M CAVILON ANTIFUNGAL [Concomitant]
     Active Substance: MICONAZOLE NITRATE
     Indication: Product used for unknown indication
  11. 3M CAVILON ANTIFUNGAL [Concomitant]
     Active Substance: MICONAZOLE NITRATE
     Dosage: EVERY 4 HOURS
  12. ARNICA [ARNICA MONTANA] [Concomitant]
     Indication: Product used for unknown indication
  13. CANDICORT [BETAMETHASONE;KETOCONAZOLE] [Concomitant]
     Indication: Product used for unknown indication
  14. NEBACETINA [Concomitant]
     Indication: Product used for unknown indication
  15. BEPANTOL [Concomitant]
     Indication: Product used for unknown indication
     Dosage: 20G EVERY 4 HOURS
  16. CETRILAN [CETIRIZINE HYDROCHLORIDE] [Concomitant]
     Indication: Product used for unknown indication
     Dosage: 40G EVERY 4 HOURS
  17. ATROVENT [Concomitant]
     Active Substance: IPRATROPIUM BROMIDE
     Indication: Product used for unknown indication
     Dosage: 20 MCG - 1 PUFF, EVERY 6 HOURS
  18. AZITHROMYCIN [Concomitant]
     Active Substance: AZITHROMYCIN
     Indication: Product used for unknown indication
  19. MONTELUKAST SODIUM [Concomitant]
     Active Substance: MONTELUKAST SODIUM
     Indication: Product used for unknown indication
     Dosage: 5MG - 1 TABLET, ONCE A DAY
  20. FLUTICASONE FUROATE [Concomitant]
     Active Substance: FLUTICASONE FUROATE
     Indication: Product used for unknown indication
     Dosage: 27,5MCG- 1 PUFF, EVERY 3 HOUR
  21. MARESIS [Concomitant]
     Indication: Product used for unknown indication
     Dosage: 1 PUFF, EVERY 3 HOURS
  22. REVITAN [NICOTINAMIDE;PYRIDOXINE HYDROCHLORIDE;RIBOFLAVIN;THIAMINE HYD [Concomitant]
     Indication: Product used for unknown indication
     Dosage: 120ML - 5ML ONCE A DAY
  23. MOTILIUM [Concomitant]
     Active Substance: DOMPERIDONE
     Indication: Product used for unknown indication
     Dosage: 1MG - 5ML, EVERY 12 HOURS
  24. CULTURELLE [Concomitant]
     Active Substance: LACTOBACILLUS RHAMNOSUS
     Indication: Product used for unknown indication
     Dosage: 1 SACHET ONCE A DAY
  25. DUPHALAC [Concomitant]
     Active Substance: LACTULOSE
     Indication: Product used for unknown indication
     Dosage: 2,5, ONCE A DAY
  26. LIROMAG [Concomitant]
     Indication: Product used for unknown indication
     Dosage: 1 SACHET, ONCE A DAY
  27. ESIO [ESOMEPRAZOLE MAGNESIUM] [Concomitant]
     Indication: Product used for unknown indication
     Dosage: 20MG, 1 TABLET, ONCE A DAY20
  28. DESLORATADINE [Concomitant]
     Active Substance: DESLORATADINE
     Indication: Product used for unknown indication
     Dosage: 0.5 MG, 5ML DAILY
  29. ASPIRIN\DIHYDROXYALUMINUM AMINOACETATE ANHYDROUS\MAGNESIUM CARBONATE [Concomitant]
     Active Substance: ASPIRIN\DIHYDROXYALUMINUM AMINOACETATE ANHYDROUS\MAGNESIUM CARBONATE
     Indication: Product used for unknown indication
     Dosage: 100MG, 1 TABLET, DAILY
  30. SIMETHICONE (DIMETHICONE) [Concomitant]
     Active Substance: DIMETHICONE
     Indication: Product used for unknown indication
  31. PREVIGRIP [FERRUM SIDEREUM;PHOSPHORUS;PRUNUS SPINOSA] [Concomitant]
     Indication: Product used for unknown indication
  32. CALCAREA CARBONICA [Concomitant]
     Active Substance: OYSTER SHELL CALCIUM CARBONATE, CRUDE
     Indication: Product used for unknown indication
  33. ANSIODORON [Concomitant]
     Indication: Product used for unknown indication
     Dosage: 1 TABLET DAILY
  34. OSCILLOCOCCINUM [Concomitant]
     Active Substance: CAIRINA MOSCHATA HEART/LIVER AUTOLYSATE
     Indication: Product used for unknown indication
  35. INFLUDORON [Concomitant]
     Indication: Product used for unknown indication
  36. DIGESAN [BROMOPRIDE] [Concomitant]
     Indication: Product used for unknown indication
  37. NOVALGINA [Concomitant]
     Active Substance: ACETAMINOPHEN\CAFFEINE
     Indication: Product used for unknown indication
  38. ALLEGRA [Concomitant]
     Active Substance: FEXOFENADINE HYDROCHLORIDE
     Indication: Product used for unknown indication
  39. NUX VOMICA [CARBO VEGETABILIS;HOMEOPATHICS NOS;PULSATILLA SPP.;STRYCHN [Concomitant]
     Indication: Product used for unknown indication
  40. PREDSIN [CHLORAMPHENICOL;PREDNISOLONE BUTYLACETATE] [Concomitant]
     Indication: Product used for unknown indication
  41. TAMIFLU [OSELTAMIVIR] [Concomitant]
     Indication: Product used for unknown indication
  42. CEFUROXIME AXETIL [Concomitant]
     Active Substance: CEFUROXIME AXETIL
     Indication: Product used for unknown indication
  43. AMOXICILLIN\CLAVULANATE POTASSIUM [Concomitant]
     Active Substance: AMOXICILLIN\CLAVULANATE POTASSIUM
     Indication: Product used for unknown indication
  44. XYLOCAINE WITH EPINEPHRINE [Concomitant]
     Active Substance: EPINEPHRINE BITARTRATE\LIDOCAINE HYDROCHLORIDE
     Indication: Product used for unknown indication
  45. CLARITHROMYCIN [Concomitant]
     Active Substance: CLARITHROMYCIN
     Indication: Product used for unknown indication
  46. ONDANSETRON HYDROCHLORIDE [Concomitant]
     Active Substance: ONDANSETRON HYDROCHLORIDE
     Indication: Product used for unknown indication

REACTIONS (3)
  - Bronchopulmonary dysplasia [Unknown]
  - Bronchial hyperreactivity [Unknown]
  - Wrong technique in product usage process [Unknown]
